FAERS Safety Report 18077242 (Version 2)
Quarter: 2020Q3

REPORT INFORMATION
  Report Type: Report from Study
  Country: US (occurrence: US)
  Receive Date: 20200727
  Receipt Date: 20200821
  Transmission Date: 20201103
  Serious: Yes (Hospitalization)
  Sender: FDA-Public Use
  Company Number: US-ACTELION-A-NJ2018-168057

PATIENT
  Sex: Female
  Weight: 68.93 kg

DRUGS (5)
  1. OPSUMIT [Suspect]
     Active Substance: MACITENTAN
     Indication: PULMONARY ARTERIAL HYPERTENSION
     Dosage: 10 MG, QD
     Route: 048
  2. ADCIRCA [Concomitant]
     Active Substance: TADALAFIL
  3. TADALAFIL. [Concomitant]
     Active Substance: TADALAFIL
  4. VELETRI [Suspect]
     Active Substance: EPOPROSTENOL
     Indication: PULMONARY ARTERIAL HYPERTENSION
     Dosage: 20 NG/KG, PER MIN
     Route: 042
  5. VELETRI [Suspect]
     Active Substance: EPOPROSTENOL
     Dosage: 20 NG/KG, PER MIN
     Route: 042

REACTIONS (18)
  - Diarrhoea [Unknown]
  - Dyspnoea exertional [Unknown]
  - Abdominal discomfort [Unknown]
  - Fluid retention [Unknown]
  - Fall [Unknown]
  - Catheter site pruritus [Unknown]
  - Rash pruritic [Unknown]
  - Palpitations [Unknown]
  - Sinus disorder [Unknown]
  - Insomnia [Unknown]
  - Hip fracture [Unknown]
  - Constipation [Unknown]
  - Upper respiratory tract congestion [Unknown]
  - Nasal congestion [Unknown]
  - Catheter site rash [Unknown]
  - Dyspnoea [Unknown]
  - Nasopharyngitis [Unknown]
  - Cough [Unknown]
